FAERS Safety Report 15333387 (Version 1)
Quarter: 2018Q4

REPORT INFORMATION
  Report Type: Spontaneous
  Country: UA (occurrence: UA)
  Receive Date: 20180830
  Receipt Date: 20180830
  Transmission Date: 20190204
  Serious: Yes (Other)
  Sender: FDA-Public Use
  Company Number: UA-TEVA-2018-UA-949519

PATIENT
  Sex: Male

DRUGS (1)
  1. ENALAPRIL-TEVA [Suspect]
     Active Substance: ENALAPRIL

REACTIONS (4)
  - Hypertensive crisis [Unknown]
  - Retinal haemorrhage [Unknown]
  - Product substitution issue [Unknown]
  - Drug ineffective [Unknown]
